FAERS Safety Report 12244868 (Version 1)
Quarter: 2016Q2

REPORT INFORMATION
  Report Type: Spontaneous
  Country: US (occurrence: US)
  Receive Date: 20160407
  Receipt Date: 20160407
  Transmission Date: 20160815
  Serious: No
  Sender: FDA-Public Use
  Company Number: US-TARO-2016TAR00134

PATIENT
  Age: 43 Year
  Sex: Female

DRUGS (3)
  1. UNSPECIFIED DIETARY SUPPLEMENTS [Concomitant]
  2. TERCONAZOLE VAGINAL SUPPOSITORIES 80 MG [Suspect]
     Active Substance: TERCONAZOLE
     Indication: FUNGAL INFECTION
     Dosage: UNK UNK, 1X/DAY
     Dates: start: 20160203
  3. B12 INJECTIONS [Concomitant]
     Dosage: UNK, 1X/MONTH

REACTIONS (7)
  - Hypersensitivity [Recovered/Resolved]
  - Nausea [Recovered/Resolved]
  - Dizziness [Recovered/Resolved]
  - Heart rate increased [Recovered/Resolved]
  - Influenza like illness [Recovered/Resolved]
  - Suprapubic pain [Recovered/Resolved]
  - Eye pain [Recovered/Resolved]

NARRATIVE: CASE EVENT DATE: 20160203
